FAERS Safety Report 8171370-6 (Version None)
Quarter: 2012Q1

REPORT INFORMATION
  Report Type: 
  Country: None (occurrence: None)
  Receive Date: 20120228
  Receipt Date: 20120228
  Transmission Date: 20120608
  Serious: Yes (Other)
  Sender: FDA-Public Use
  Company Number: US-PFIZER INC-2011306298

PATIENT
  Sex: Female
  Weight: 87.1 kg

DRUGS (5)
  1. NEURONTIN [Suspect]
     Indication: ARTHRALGIA
  2. NEURONTIN [Suspect]
     Indication: HYPOAESTHESIA
  3. NEURONTIN [Suspect]
     Indication: BACK PAIN
     Dosage: 300 MG, 3X/DAY
     Dates: start: 20110315, end: 20110601
  4. NEURONTIN [Suspect]
     Indication: PAIN IN EXTREMITY
  5. NEURONTIN [Suspect]
     Indication: RADICULOPATHY

REACTIONS (1)
  - SEDATION [None]
